FAERS Safety Report 4872907-2 (Version None)
Quarter: 2006Q1

REPORT INFORMATION
  Report Type: 
  Country: None (occurrence: None)
  Receive Date: 20060105
  Receipt Date: 20050105
  Transmission Date: 20060701
  Serious: Yes (Other)
  Sender: FDA-Public Use
  Company Number: US-BRISTOL-MYERS SQUIBB COMPANY-12815197

PATIENT
  Age: 34 Year
  Sex: Female
  Weight: 101 kg

DRUGS (3)
  1. SERZONE [Suspect]
     Dates: end: 19990623
  2. VALIUM [Concomitant]
  3. TENORMIN [Concomitant]

REACTIONS (1)
  - HEPATIC STEATOSIS [None]
